FAERS Safety Report 10516004 (Version 1)
Quarter: 2014Q4

REPORT INFORMATION
  Report Type: Spontaneous
  Country: NL (occurrence: None)
  Receive Date: 20141009
  Receipt Date: 20141009
  Transmission Date: 20150528
  Serious: Yes (Death)
  Sender: FDA-Public Use
  Company Number: 2563920

PATIENT
  Age: 77 Year
  Sex: Male

DRUGS (6)
  1. VANCOMYCIN HYDROCHLORIDE. [Suspect]
     Active Substance: VANCOMYCIN HYDROCHLORIDE
     Indication: BRAIN ABSCESS
     Dosage: DRIP
     Route: 042
  2. CEFTRIAXONE. [Suspect]
     Active Substance: CEFTRIAXONE
     Indication: BRAIN ABSCESS
     Dosage: NOT OTHERWISE SPECIFIED
     Route: 042
  3. CLARITHROMYCIN. [Suspect]
     Active Substance: CLARITHROMYCIN
     Indication: BRAIN ABSCESS
     Route: 048
  4. PENICILLIN /00000901/ [Suspect]
     Active Substance: PENICILLIN
     Indication: BRAIN ABSCESS
     Dosage: 12 MIU IU (1,000,00S)  (NOT OTHERWISE SPECIFIED)
     Route: 042
  5. METRONIDAZOLE. [Suspect]
     Active Substance: METRONIDAZOLE
     Indication: BRAIN ABSCESS
     Dosage: NOT OTHERWISE SPECIFIED
     Route: 042
  6. AMOXICILLIN. [Suspect]
     Active Substance: AMOXICILLIN
     Indication: BRAIN ABSCESS
     Dosage: NOT OTHERWISE SPECIFIED
     Route: 042

REACTIONS (12)
  - Headache [None]
  - Respiratory failure [None]
  - Drug reaction with eosinophilia and systemic symptoms [None]
  - Acute hepatic failure [None]
  - Confusional state [None]
  - Renal failure [None]
  - Haemodynamic instability [None]
  - Acute kidney injury [None]
  - Streptococcus test positive [None]
  - Night sweats [None]
  - Disorientation [None]
  - Diffuse alveolar damage [None]
